FAERS Safety Report 25124949 (Version 1)
Quarter: 2025Q1

REPORT INFORMATION
  Report Type: Report from Study
  Country: US (occurrence: US)
  Receive Date: 20250326
  Receipt Date: 20250326
  Transmission Date: 20250409
  Serious: Yes (Hospitalization)
  Sender: BAUSCH AND LOMB
  Company Number: US-BAUSCH-BL-2022-003376

PATIENT
  Age: 42 Year
  Sex: Male

DRUGS (2)
  1. SILIQ [Suspect]
     Active Substance: BRODALUMAB
     Indication: Psoriasis
     Dosage: 210MG/1.5ML;  SUBCUTANEOUSLY AT WEEK 0, 1 AND 2
     Route: 058
     Dates: start: 202109
  2. SILIQ [Suspect]
     Active Substance: BRODALUMAB
     Dosage: 210MG/1.5ML;  INJECT 210MG SUBCUTANEOUSLY AT WEEK 0, 1 AND 2 AS DIRECTED.
     Route: 058
     Dates: start: 202406

REACTIONS (2)
  - Spinal operation [Unknown]
  - Product dose omission issue [Unknown]
